FAERS Safety Report 26129045 (Version 2)
Quarter: 2025Q4

REPORT INFORMATION
  Report Type: Spontaneous
  Country: JP (occurrence: JP)
  Receive Date: 20251208
  Receipt Date: 20251224
  Transmission Date: 20260119
  Serious: Yes (Other)
  Sender: JOHNSON AND JOHNSON
  Company Number: JP-JNJFOC-20251207055

PATIENT
  Age: 5 Decade
  Sex: Male

DRUGS (5)
  1. RYBREVANT [Suspect]
     Active Substance: AMIVANTAMAB-VMJW
     Indication: EGFR gene mutation
     Dosage: C1D1
     Route: 041
     Dates: start: 20251119, end: 20251119
  2. RYBREVANT [Suspect]
     Active Substance: AMIVANTAMAB-VMJW
     Dosage: C1D2
     Route: 041
     Dates: start: 20251120, end: 20251120
  3. RYBREVANT [Suspect]
     Active Substance: AMIVANTAMAB-VMJW
     Dosage: C1D8
     Route: 041
     Dates: start: 20251126, end: 20251126
  4. CARBOPLATIN [Concomitant]
     Active Substance: CARBOPLATIN
     Indication: EGFR gene mutation
     Dosage: DOSE UNKNOWN
  5. PEMETREXED [Concomitant]
     Active Substance: PEMETREXED
     Indication: EGFR gene mutation
     Dosage: DOSE UNKNOWN

REACTIONS (1)
  - Psoas abscess [Not Recovered/Not Resolved]

NARRATIVE: CASE EVENT DATE: 20251101
